FAERS Safety Report 5308647-5 (Version None)
Quarter: 2007Q2

REPORT INFORMATION
  Report Type: 
  Country: None (occurrence: None)
  Receive Date: 20070426
  Receipt Date: 20070420
  Transmission Date: 20071010
  Serious: Yes (Life-Threatening)
  Sender: FDA-Public Use
  Company Number: 2007AP02057

PATIENT
  Age: 21595 Day
  Sex: Male

DRUGS (8)
  1. SEROQUEL [Suspect]
     Indication: SCHIZOPHRENIA
     Route: 048
     Dates: end: 20060301
  2. SEROQUEL [Suspect]
     Route: 048
     Dates: start: 20060702, end: 20060717
  3. SEROQUEL [Suspect]
     Route: 048
     Dates: start: 20060717, end: 20061222
  4. CHLORPROMAZINE HYDROCHLORIDE [Suspect]
     Indication: SCHIZOPHRENIA
     Dates: end: 20061222
  5. ABILIFY [Suspect]
     Indication: SCHIZOPHRENIA
     Route: 048
     Dates: start: 20060717, end: 20060914
  6. ABILIFY [Suspect]
     Route: 048
     Dates: start: 20060914, end: 20061222
  7. RISUMIC [Concomitant]
     Indication: HYPOTENSION
     Route: 048
     Dates: start: 20060713, end: 20061222
  8. ZYPREXA [Concomitant]

REACTIONS (1)
  - ILEUS [None]
